FAERS Safety Report 4815466-2 (Version None)
Quarter: 2005Q4

REPORT INFORMATION
  Report Type: 
  Country: None (occurrence: None)
  Receive Date: 20051031
  Receipt Date: 20051018
  Transmission Date: 20060501
  Serious: Yes (Hospitalization)
  Sender: FDA-Public Use
  Company Number: JP-JNJFOC-20050606809

PATIENT
  Sex: Female
  Weight: 43 kg

DRUGS (33)
  1. REMICADE [Suspect]
     Route: 065
  2. REMICADE [Suspect]
     Route: 065
  3. REMICADE [Suspect]
     Route: 065
  4. REMICADE [Suspect]
     Route: 065
  5. REMICADE [Suspect]
     Route: 065
  6. REMICADE [Suspect]
     Route: 065
  7. REMICADE [Suspect]
     Route: 065
  8. REMICADE [Suspect]
     Indication: RHEUMATOID ARTHRITIS
     Route: 065
  9. RHEUMATREX [Concomitant]
     Route: 048
  10. RHEUMATREX [Concomitant]
     Indication: RHEUMATOID ARTHRITIS
     Route: 048
  11. ISCOTIN [Concomitant]
     Indication: ANTIBIOTIC PROPHYLAXIS
     Route: 048
  12. PREDNISOLONE [Concomitant]
     Route: 048
  13. LOXONIN [Concomitant]
     Route: 048
  14. BREDININ [Concomitant]
     Route: 048
  15. LEUCOVORIN [Concomitant]
     Route: 048
  16. LASIX [Concomitant]
     Route: 048
  17. ALFAROL [Concomitant]
     Dosage: 0.5 RG
     Route: 048
  18. PARIET [Concomitant]
     Route: 048
  19. DIAMOX [Concomitant]
     Route: 048
  20. GLUCONSAN K [Concomitant]
     Route: 048
  21. VITAMEDIN [Concomitant]
     Route: 048
  22. VITAMEDIN [Concomitant]
     Route: 048
  23. VITAMEDIN [Concomitant]
     Route: 048
  24. BENET [Concomitant]
     Indication: OSTEOPOROSIS
     Route: 048
  25. COTRIM [Concomitant]
     Route: 048
  26. COTRIM [Concomitant]
     Route: 048
  27. DIFLUCAN [Concomitant]
     Route: 048
  28. TAKEPRON [Concomitant]
     Indication: GASTRIC ULCER
     Route: 048
  29. FERROMIA [Concomitant]
     Route: 048
  30. SOLU-CORTEF [Concomitant]
  31. SOLU-CORTEF [Concomitant]
     Indication: PROPHYLAXIS
  32. VENA [Concomitant]
     Dosage: 5 TAB
     Route: 048
  33. VENA [Concomitant]
     Indication: PROPHYLAXIS
     Route: 048

REACTIONS (9)
  - ANTIPHOSPHOLIPID ANTIBODIES [None]
  - BLOOD PRESSURE DECREASED [None]
  - DIARRHOEA [None]
  - HEADACHE [None]
  - INFUSION RELATED REACTION [None]
  - MALAISE [None]
  - PYREXIA [None]
  - RASH PRURITIC [None]
  - URTICARIA [None]
